FAERS Safety Report 8334671-4 (Version None)
Quarter: 2012Q2

REPORT INFORMATION
  Report Type: 
  Country: None (occurrence: None)
  Receive Date: 20120503
  Receipt Date: 20110426
  Transmission Date: 20120825
  Serious: No
  Sender: FDA-Public Use
  Company Number: US-TEVA-2011002066

PATIENT
  Sex: Female
  Weight: 90.8 kg

DRUGS (3)
  1. NUVIGIL [Suspect]
     Dosage: 125 ;
     Route: 048
     Dates: start: 20110401
  2. NUVIGIL [Suspect]
     Indication: FATIGUE
     Dosage: 250 MILLIGRAM;
     Route: 048
     Dates: start: 20110326, end: 20110401
  3. NEXIUM [Concomitant]
     Dates: start: 20101001, end: 20110416

REACTIONS (1)
  - ABDOMINAL PAIN UPPER [None]
